FAERS Safety Report 15428871 (Version 1)
Quarter: 2018Q3

REPORT INFORMATION
  Report Type: Spontaneous
  Country: US (occurrence: US)
  Receive Date: 20180919
  Receipt Date: 20180919
  Transmission Date: 20181010
  Serious: No
  Sender: FDA-Public Use
  Company Number: None

PATIENT
  Age: 76 Year
  Sex: Female

DRUGS (1)
  1. ESBRIET [Suspect]
     Active Substance: PIRFENIDONE
     Route: 048
     Dates: start: 201710

REACTIONS (4)
  - Acidosis [None]
  - Fatigue [None]
  - Nausea [None]
  - Blood bicarbonate decreased [None]

NARRATIVE: CASE EVENT DATE: 20180918
